FAERS Safety Report 5320026-3 (Version None)
Quarter: 2007Q1

REPORT INFORMATION
  Report Type: 
  Country: None (occurrence: None)
  Receive Date: 20070215
  Receipt Date: 20060331
  Transmission Date: 20070707
  Serious: No
  Sender: FDA-Public Use
  Company Number: MC200600248

PATIENT
  Sex: Male

DRUGS (3)
  1. ANGIOMAX [Suspect]
     Dosage: 0.75 MG/KG, IV BOLUS
     Route: 040
     Dates: start: 20060315, end: 20060315
  2. HEPARIN [Concomitant]
  3. ASPIRIN [Concomitant]

REACTIONS (1)
  - THROMBOSIS [None]
